FAERS Safety Report 4502162-4 (Version None)
Quarter: 2004Q4

REPORT INFORMATION
  Report Type: 
  Country: None (occurrence: None)
  Receive Date: 20041109
  Receipt Date: 20041029
  Transmission Date: 20050328
  Serious: Yes (Hospitalization)
  Sender: FDA-Public Use
  Company Number: 2004086563

PATIENT
  Age: 63 Year
  Sex: Male

DRUGS (2)
  1. VIRACEPT [Suspect]
     Indication: HIV TEST POSITIVE
     Dosage: 10 DOSES (1 D), ORAL
     Route: 048
  2. ZIDOVUDINE W/LAMIVUDINE (LAMIVUDINE, ZIDOVUDINE) [Suspect]
     Indication: HIV TEST POSITIVE
     Dosage: 2 DOSES (1 D), ORAL
     Route: 048

REACTIONS (3)
  - BLOOD CHOLESTEROL DECREASED [None]
  - BLOOD TRIGLYCERIDES INCREASED [None]
  - MYOCARDIAL INFARCTION [None]
